FAERS Safety Report 7289387-2 (Version None)
Quarter: 2011Q1

REPORT INFORMATION
  Report Type: 
  Country: None (occurrence: None)
  Receive Date: 20110211
  Receipt Date: 20110208
  Transmission Date: 20110831
  Serious: Yes (Death)
  Sender: FDA-Public Use
  Company Number: GB-PFIZER INC-2011028642

PATIENT
  Age: 29 Year
  Sex: Male
  Weight: 97 kg

DRUGS (4)
  1. EPANUTIN [Suspect]
     Dosage: 86.25 ML, 1X/DAY
     Route: 048
     Dates: start: 20101123
  2. CLOBAZAM [Concomitant]
     Indication: EPILEPSY
     Dosage: 10 MG, 2X/DAY
     Route: 048
     Dates: start: 20011127
  3. EPILIM CHRONO [Concomitant]
     Indication: EPILEPSY
     Dosage: 1500 MG, 2X/DAY
     Route: 048
     Dates: start: 20021004
  4. EPANUTIN [Suspect]
     Indication: EPILEPSY
     Dosage: UNK
     Route: 048
     Dates: end: 20101123

REACTIONS (1)
  - DEATH [None]
